FAERS Safety Report 9308489 (Version 3)
Quarter: 2013Q2

REPORT INFORMATION
  Report Type: Spontaneous
  Country: FR (occurrence: FR)
  Receive Date: 20130524
  Receipt Date: 20130603
  Transmission Date: 20140414
  Serious: Yes (Hospitalization, Other)
  Sender: FDA-Public Use
  Company Number: FR-ROCHE-1228647

PATIENT
  Age: 88 Year
  Sex: Male

DRUGS (9)
  1. LUCENTIS [Suspect]
     Indication: AGE-RELATED MACULAR DEGENERATION
     Route: 050
     Dates: start: 2013
  2. PLAVIX [Suspect]
     Indication: PRODUCT USED FOR UNKNOWN INDICATION
     Route: 065
  3. PREVISCAN (FRANCE) [Suspect]
     Indication: PRODUCT USED FOR UNKNOWN INDICATION
     Route: 065
  4. TRIATEC [Concomitant]
  5. LASILIX [Concomitant]
  6. CRESTOR [Concomitant]
  7. INEXIUM [Concomitant]
  8. TARDYFERON (FRANCE) [Concomitant]
  9. SPIRIVA [Concomitant]

REACTIONS (2)
  - Pulmonary embolism [Recovered/Resolved]
  - Gastrointestinal haemorrhage [Recovered/Resolved]
